FAERS Safety Report 6841571-5 (Version None)
Quarter: 2010Q3

REPORT INFORMATION
  Report Type: 
  Country: None (occurrence: None)
  Receive Date: 20100714
  Receipt Date: 20070709
  Transmission Date: 20110219
  Serious: No
  Sender: FDA-Public Use
  Company Number: US-PFIZER INC-2007058042

PATIENT
  Sex: Female
  Weight: 120 kg

DRUGS (14)
  1. CHANTIX [Suspect]
     Indication: SMOKING CESSATION THERAPY
     Dates: start: 20070702
  2. WELLBUTRIN [Concomitant]
     Indication: TOBACCO USER
  3. VALSARTAN [Concomitant]
     Indication: HYPERTENSION
  4. HYDROCHLOROTHIAZIDE [Concomitant]
     Indication: HYPERTENSION
  5. LEXAPRO [Concomitant]
     Indication: DEPRESSION
  6. NAMENDA [Concomitant]
     Indication: MEMORY IMPAIRMENT
  7. KLONOPIN [Concomitant]
     Indication: SLEEP DISORDER
  8. ACETYLSALICYLIC ACID [Concomitant]
  9. PRILOSEC [Concomitant]
  10. LORATADINE [Concomitant]
  11. GEODON [Concomitant]
  12. VITAMINS [Concomitant]
  13. INSULIN [Concomitant]
     Indication: DIABETES MELLITUS
  14. OXYGEN [Concomitant]
     Indication: DYSPNOEA

REACTIONS (2)
  - DRUG INEFFECTIVE [None]
  - HEADACHE [None]
